FAERS Safety Report 11092236 (Version 2)
Quarter: 2015Q2

REPORT INFORMATION
  Report Type: Spontaneous
  Country: US (occurrence: US)
  Receive Date: 20150506
  Receipt Date: 20150506
  Transmission Date: 20150821
  Serious: No
  Sender: FDA-Public Use
  Company Number: US-AMGEN-USASP2015041752

PATIENT
  Age: 63 Year
  Sex: Female

DRUGS (2)
  1. ENBREL [Suspect]
     Active Substance: ETANERCEPT
     Indication: RHEUMATOID ARTHRITIS
     Dosage: 50 MG, QWK
     Route: 065
  2. PREDNISONE. [Concomitant]
     Active Substance: PREDNISONE
     Dosage: UNK

REACTIONS (6)
  - Pain [Recovered/Resolved]
  - Gait disturbance [Recovered/Resolved]
  - Inflammation [Recovered/Resolved]
  - Peripheral swelling [Recovered/Resolved]
  - Injection site swelling [Recovered/Resolved]
  - Joint swelling [Recovered/Resolved]
